FAERS Safety Report 9716168 (Version 1)
Quarter: 2013Q4

REPORT INFORMATION
  Report Type: Spontaneous
  Country: US (occurrence: None)
  Receive Date: 20131126
  Receipt Date: 20131126
  Transmission Date: 20140711
  Serious: Yes (Death)
  Sender: FDA-Public Use
  Company Number: None

PATIENT
  Age: 78 Year
  Sex: Male
  Weight: 68.2 kg

DRUGS (11)
  1. WARFARIN [Suspect]
     Indication: THROMBOSIS PROPHYLAXIS
     Route: 048
  2. WARFARIN [Suspect]
     Indication: ATRIAL FIBRILLATION
     Route: 048
  3. ACETAMINOPHEN [Concomitant]
  4. TYLENOL #3 [Concomitant]
  5. BISOPROLOL [Concomitant]
  6. HCT [Concomitant]
  7. MELOXICAM [Concomitant]
  8. METFORMIN [Concomitant]
  9. VIGAMOX EYE DROPS [Concomitant]
  10. NIFEDIPINE XL [Concomitant]
  11. TAMSULOSIN [Concomitant]

REACTIONS (4)
  - Unresponsive to stimuli [None]
  - Fall [None]
  - Head injury [None]
  - Blood glucose increased [None]
